FAERS Safety Report 5656037-8 (Version None)
Quarter: 2008Q1

REPORT INFORMATION
  Report Type: 
  Country: None (occurrence: None)
  Receive Date: 20080307
  Receipt Date: 20080225
  Transmission Date: 20080703
  Serious: Yes (Other)
  Sender: FDA-Public Use
  Company Number: GB-PFIZER INC-2008019165

PATIENT
  Age: 58 Year
  Sex: Female
  Weight: 101 kg

DRUGS (4)
  1. CHANTIX [Suspect]
     Indication: SMOKING CESSATION THERAPY
     Route: 048
     Dates: start: 20071001, end: 20080101
  2. METFORMIN HCL [Concomitant]
     Indication: DIABETES MELLITUS
     Dosage: TEXT:500
     Route: 048
  3. MIRTAZAPINE [Concomitant]
     Indication: DEPRESSION
     Route: 048
  4. NICORANDIL [Concomitant]
     Indication: ANGINA PECTORIS
     Route: 048

REACTIONS (2)
  - DEPRESSION [None]
  - SUICIDAL IDEATION [None]
